FAERS Safety Report 5961360-3 (Version None)
Quarter: 2008Q4

REPORT INFORMATION
  Report Type: 
  Country: None (occurrence: None)
  Receive Date: 20081121
  Receipt Date: 20081120
  Transmission Date: 20090506
  Serious: Yes (Hospitalization)
  Sender: FDA-Public Use
  Company Number: US-BRISTOL-MYERS SQUIBB COMPANY-14413561

PATIENT
  Age: 33 Year
  Sex: Female

DRUGS (2)
  1. COUMADIN [Suspect]
     Indication: MITRAL VALVE REPLACEMENT
     Route: 065
  2. PLAVIX [Suspect]
     Indication: TRANSIENT ISCHAEMIC ATTACK
     Route: 048
     Dates: start: 20080401, end: 20080801

REACTIONS (1)
  - HAEMORRHAGIC OVARIAN CYST [None]
